FAERS Safety Report 16162723 (Version 3)
Quarter: 2019Q2

REPORT INFORMATION
  Report Type: Spontaneous
  Country: PL (occurrence: PL)
  Receive Date: 20190405
  Receipt Date: 20190430
  Transmission Date: 20190711
  Serious: Yes (Death, Other)
  Sender: FDA-Public Use
  Company Number: PL-BAYER-2019-062148

PATIENT
  Age: 54 Year
  Sex: Female
  Weight: 67 kg

DRUGS (6)
  1. DOBUTAMINE [Concomitant]
     Active Substance: DOBUTAMINE\DOBUTAMINE HYDROCHLORIDE
     Dosage: UNK
  2. MACITENTAN [Concomitant]
     Active Substance: MACITENTAN
     Indication: PULMONARY ARTERIAL HYPERTENSION
     Dosage: 10 MG, QD
     Route: 048
     Dates: start: 2018, end: 20190315
  3. NORADRENALINE [NOREPINEPHRINE] [Concomitant]
     Active Substance: NOREPINEPHRINE
     Indication: LOW CARDIAC OUTPUT SYNDROME
     Dosage: UNK
     Dates: start: 20190309, end: 20190315
  4. ADEMPAS [Suspect]
     Active Substance: RIOCIGUAT
     Dosage: 1 MG, BID
     Route: 048
     Dates: start: 20190307, end: 20190307
  5. ADEMPAS [Suspect]
     Active Substance: RIOCIGUAT
     Dosage: 1 MG, TID
     Dates: start: 20190306, end: 20190306
  6. ILOPROST. [Concomitant]
     Active Substance: ILOPROST
     Indication: PULMONARY ARTERIAL HYPERTENSION
     Dosage: 6 UNK
     Route: 055
     Dates: start: 2018, end: 20190315

REACTIONS (3)
  - Cardiac failure [Fatal]
  - Blood pressure decreased [Recovered/Resolved]
  - Low cardiac output syndrome [Fatal]

NARRATIVE: CASE EVENT DATE: 20190307
